FAERS Safety Report 13652164 (Version 1)
Quarter: 2017Q2

REPORT INFORMATION
  Report Type: Report from Study
  Country: JP (occurrence: JP)
  Receive Date: 20170614
  Receipt Date: 20170614
  Transmission Date: 20170830
  Serious: Yes (Hospitalization)
  Sender: FDA-Public Use
  Company Number: JP-AMGEN-JPNCT2012080069

PATIENT
  Age: 67 Year
  Sex: Female
  Weight: 52.4 kg

DRUGS (46)
  1. GLYCERIN. [Concomitant]
     Active Substance: GLYCERIN
     Dosage: 120 ML, UNK
     Route: 054
     Dates: start: 20121112, end: 20121113
  2. WARFARIN POTASSIUM [Concomitant]
     Active Substance: WARFARIN POTASSIUM
     Dosage: 2 MG, UNK
     Route: 048
     Dates: start: 20121116, end: 20121119
  3. RANITIDINE HYDROCHLORIDE. [Concomitant]
     Active Substance: RANITIDINE HYDROCHLORIDE
     Dosage: 50 MG, UNK
     Route: 042
     Dates: start: 20120620
  4. DIPHENHYDRAMINE HYDROCHLORIDE. [Concomitant]
     Active Substance: DIPHENHYDRAMINE HYDROCHLORIDE
     Dosage: 50 MG, UNK
     Route: 048
     Dates: start: 20120620
  5. MAGNESIUM CITRATE. [Concomitant]
     Active Substance: MAGNESIUM CITRATE
     Dosage: 50 G, UNK
     Route: 048
     Dates: start: 20121112, end: 20121112
  6. CEFAZOLIN SODIUM. [Concomitant]
     Active Substance: CEFAZOLIN SODIUM
     Dosage: 1 MG, UNK
     Route: 042
     Dates: start: 20121113, end: 20121116
  7. METOCLOPRAMIDE. [Concomitant]
     Active Substance: METOCLOPRAMIDE
     Dosage: 5 MG, UNK
     Route: 048
     Dates: start: 20121113, end: 20121113
  8. DOPAMINE HYDROCHLORIDE. [Concomitant]
     Active Substance: DOPAMINE HYDROCHLORIDE
     Dosage: UNK
     Route: 042
     Dates: start: 20121113, end: 20121113
  9. HYDROXYETHYLSTARCH [Concomitant]
     Active Substance: HETASTARCH
     Dosage: UNK
     Route: 042
     Dates: start: 20121113, end: 20121113
  10. AMIPAREN [Concomitant]
     Active Substance: AMINO ACIDS
     Dosage: UNK
     Route: 042
     Dates: start: 20121113, end: 20121113
  11. SEVOFLURANE. [Concomitant]
     Active Substance: SEVOFLURANE
     Dosage: UNK
     Route: 055
     Dates: start: 20121113, end: 20121113
  12. PACLITAXEL. [Concomitant]
     Active Substance: PACLITAXEL
     Indication: MALIGNANT PERITONEAL NEOPLASM
     Dosage: 260 MG, UNK
     Route: 042
     Dates: start: 20120620
  13. GRANISETRON HYDROCHLORIDE. [Concomitant]
     Active Substance: GRANISETRON HYDROCHLORIDE
     Dosage: 3 MG, UNK
     Route: 042
     Dates: start: 20120620
  14. DEXAMETHASONE. [Concomitant]
     Active Substance: DEXAMETHASONE
     Dosage: 3.3 MG, UNK
     Route: 042
     Dates: start: 20120620, end: 20121113
  15. APREPITANT. [Concomitant]
     Active Substance: APREPITANT
     Dosage: 80 MG, UNK
     Route: 048
     Dates: start: 20120913, end: 20121013
  16. LEVOFLOXACIN HEMIHYDRATE [Concomitant]
     Active Substance: LEVOFLOXACIN
     Dosage: 500 MG, UNK
     Route: 048
     Dates: start: 20120929, end: 20121001
  17. MAGNESIUM OXIDE. [Concomitant]
     Active Substance: MAGNESIUM OXIDE
     Dosage: 0.5 G, UNK
     Route: 048
     Dates: start: 20121116
  18. FLURBIPROFEN AXETIL [Concomitant]
     Active Substance: FLURBIPROFEN AXETIL
     Dosage: 50 MG, UNK
     Route: 042
     Dates: start: 20121115, end: 20121119
  19. INDIGO CARMINE [Concomitant]
     Active Substance: INDIGOTINDISULFONATE SODIUM
     Dosage: 20 MG, UNK
     Route: 042
     Dates: start: 20121118, end: 20121118
  20. ROCURONIUM BROMIDE. [Concomitant]
     Active Substance: ROCURONIUM BROMIDE
     Dosage: UNK
     Route: 042
     Dates: start: 20121113, end: 20121113
  21. PHENYLEPHRINE HYDROCHLORIDE. [Concomitant]
     Active Substance: PHENYLEPHRINE HYDROCHLORIDE
     Dosage: UNK
     Route: 042
     Dates: start: 20121113, end: 20121113
  22. VEEN D [Concomitant]
     Active Substance: CALCIUM CHLORIDE\DEXTROSE\POTASSIUM CHLORIDE\SODIUM ACETATE\SODIUM CHLORIDE
     Dosage: UNK
     Route: 042
     Dates: start: 20121113, end: 20121118
  23. AMG 386 [Suspect]
     Active Substance: TREBANANIB
     Indication: MALIGNANT PERITONEAL NEOPLASM
     Dosage: UNK
     Dates: start: 20120725
  24. BETAMETHASONE. [Concomitant]
     Active Substance: BETAMETHASONE
     Dosage: 2 MG, UNK
     Route: 062
     Dates: start: 20120914, end: 20121125
  25. EPHEDRINE HYDROCHLORIDE [Concomitant]
     Active Substance: EPHEDRINE HYDROCHLORIDE
     Dosage: UNK
     Route: 042
     Dates: start: 20121113, end: 20121113
  26. SUGAMMADEX SODIUM [Concomitant]
     Active Substance: SUGAMMADEX SODIUM
     Dosage: 200 MG, UNK
     Route: 042
     Dates: start: 20121113, end: 20121113
  27. DROPERIDOL. [Concomitant]
     Active Substance: DROPERIDOL
     Dosage: UNK
     Route: 050
     Dates: start: 20121113, end: 20121115
  28. PANTETHINE [Concomitant]
     Active Substance: PANTETHINE
     Dosage: 100 MG, UNK
     Route: 048
     Dates: start: 20121116, end: 20121117
  29. PROPOFOL. [Concomitant]
     Active Substance: PROPOFOL
     Dosage: UNK
     Route: 042
     Dates: start: 20121113, end: 20121113
  30. RILMAZAFONE [Concomitant]
     Active Substance: RILMAZAFONE
     Dosage: 1 MG, UNK
     Route: 048
     Dates: start: 20121120, end: 20121122
  31. LIDOCAINE. [Concomitant]
     Active Substance: LIDOCAINE
     Dosage: UNK
     Route: 050
     Dates: start: 20121113, end: 20121113
  32. ENSURE [Concomitant]
     Active Substance: AMINO ACIDS\DEXTROSE\ELECTROLYTES NOS\SOYBEAN OIL\VITAMINS
     Dosage: 250 ML, UNK
     Route: 048
     Dates: start: 20121207
  33. CARBOPLATIN. [Concomitant]
     Active Substance: CARBOPLATIN
     Indication: MALIGNANT PERITONEAL NEOPLASM
     Dosage: 500 MG, UNK
     Route: 042
     Dates: start: 20120620
  34. DICLOFENAC SODIUM. [Concomitant]
     Active Substance: DICLOFENAC SODIUM
     Dosage: 25 MG, UNK
     Route: 054
     Dates: start: 20121117, end: 20121126
  35. REMIFENTANIL HYDROCHLORIDE [Concomitant]
     Active Substance: REMIFENTANIL HYDROCHLORIDE
     Dosage: UNK
     Route: 042
     Dates: start: 20121113, end: 20121113
  36. SOLDEM 3A [Concomitant]
     Active Substance: CARBOHYDRATES\POTASSIUM CHLORIDE\SODIUM CHLORIDE\SODIUM LACTATE
     Dosage: 500 ML, UNK
     Route: 042
     Dates: start: 20121119, end: 20121203
  37. PANTHENOL [Concomitant]
     Active Substance: PANTHENOL
     Dosage: UNK
     Route: 042
     Dates: start: 20121113, end: 20121118
  38. PENTAZOCINE [Concomitant]
     Active Substance: PENTAZOCINE
     Dosage: 15 MG, UNK
     Route: 030
     Dates: start: 20121114, end: 20121114
  39. DAIKENTYUTO [Concomitant]
     Active Substance: HERBALS
     Dosage: 2.5 G, UNK
     Route: 048
     Dates: start: 20121116, end: 20121117
  40. RILMAZAFONE HYDROCHLORIDE [Concomitant]
     Active Substance: RILMAZAFONE HYDROCHLORIDE
     Dosage: 1 MG, UNK
     Route: 048
     Dates: start: 20121120, end: 20121122
  41. FENTANYL CITRATE. [Concomitant]
     Active Substance: FENTANYL CITRATE
     Dosage: UNK
     Route: 050
     Dates: start: 20121113, end: 20121115
  42. PHYSIO [Concomitant]
     Dosage: UNK
     Route: 042
     Dates: start: 20121113, end: 20121113
  43. BICARBON [Concomitant]
     Active Substance: SODIUM BICARBONATE
     Dosage: UNK
     Route: 042
     Dates: start: 20121113, end: 20121113
  44. VEEN-F [Concomitant]
     Active Substance: CALCIUM CHLORIDE\MAGNESIUM CHLORIDE\POTASSIUM CHLORIDE\SODIUM ACETATE\SODIUM CHLORIDE
     Dosage: UNK
     Route: 042
     Dates: start: 20121113, end: 20121113
  45. ROPIVACAINE HYDROCHLORIDE. [Concomitant]
     Active Substance: ROPIVACAINE HYDROCHLORIDE
     Dosage: UNK
     Route: 050
     Dates: start: 20121113, end: 20121115
  46. ALBUMINAR [Concomitant]
     Active Substance: ALBUMIN HUMAN
     Dosage: UNK
     Route: 042
     Dates: start: 20121113, end: 20121113

REACTIONS (2)
  - Ascites [Recovered/Resolved]
  - Pleural effusion [Recovered/Resolved]

NARRATIVE: CASE EVENT DATE: 20121212
